FAERS Safety Report 10072182 (Version 1)
Quarter: 2014Q2

REPORT INFORMATION
  Report Type: Spontaneous
  Country: US (occurrence: None)
  Receive Date: 20140409
  Receipt Date: 20140409
  Transmission Date: 20141212
  Serious: Yes (Other)
  Sender: FDA-Public Use
  Company Number: SYM-2014-19464

PATIENT
  Age: 66 Year
  Sex: Female

DRUGS (1)
  1. XENAZINE [Suspect]
     Indication: DYSKINESIA
     Dosage: 3 TABLETS (37.5MG) IN THE AM, 2 TABLETS (25MG) AT AN UNSPECIFIED TIME., ORAL)
     Route: 048
     Dates: start: 20140306

REACTIONS (1)
  - Urinary tract infection [None]
